FAERS Safety Report 17259526 (Version 2)
Quarter: 2020Q1

REPORT INFORMATION
  Report Type: Report from Study
  Country: US (occurrence: US)
  Receive Date: 20200110
  Receipt Date: 20200114
  Transmission Date: 20200409
  Serious: Yes (Hospitalization)
  Sender: FDA-Public Use
  Company Number: US-TEVA-2020-US-1167855

PATIENT
  Age: 59 Year
  Sex: Male
  Weight: 106.69 kg

DRUGS (32)
  1. GABAPENTIN. [Concomitant]
     Active Substance: GABAPENTIN
     Indication: NEURALGIA
     Dosage: 600 MILLIGRAM DAILY;
     Route: 048
     Dates: start: 20190809
  2. NYSTATIN. [Concomitant]
     Active Substance: NYSTATIN
     Indication: MUCOSAL INFLAMMATION
     Dosage: 20 ML DAILY;
     Route: 048
     Dates: start: 20190821
  3. IRINOTECAN [Suspect]
     Active Substance: IRINOTECAN
     Indication: NEOPLASM
     Dosage: DAYS 1 AND 15 OF EACH 28-DAY CYCLE ((180 MG/M2,1 IN 2 WK))
     Route: 042
     Dates: start: 20190814, end: 20190828
  4. AMLODIPINE-OLMESARTAN [Concomitant]
     Indication: HYPERTENSION
     Dosage: DOSAGE: 10-40 MG
     Route: 048
     Dates: start: 2017
  5. ATROPINE SULFATE. [Concomitant]
     Active Substance: ATROPINE SULFATE
     Indication: PREMEDICATION
     Dosage: .4 MILLIGRAM DAILY;
     Route: 058
     Dates: start: 20190814
  6. 5-FLUOROURACIL [Suspect]
     Active Substance: FLUOROURACIL
     Dosage: 2400 MG/M2,1 IN 2 WEEKS
     Route: 042
     Dates: start: 20191009, end: 20191011
  7. TESTOSTERONE CYPIONATE. [Concomitant]
     Active Substance: TESTOSTERONE CYPIONATE
     Indication: BLOOD TESTOSTERONE ABNORMAL
     Dosage: 200 MILLIGRAM/MILLILITERS DAILY;
     Route: 030
     Dates: start: 2019
  8. PEGFILGRASTIM [Concomitant]
     Active Substance: PEGFILGRASTIM
     Indication: NEUTROPENIA
     Dosage: 6 MILLIGRAM DAILY;
     Route: 058
     Dates: start: 20190927
  9. LOPERAMIDE RPG [Concomitant]
     Indication: DIARRHOEA
     Dosage: 2 MILLIGRAM DAILY;
     Route: 048
     Dates: start: 20191015
  10. MORPHINE SULFATE. [Concomitant]
     Active Substance: MORPHINE SULFATE
     Indication: MUCOSAL INFLAMMATION
     Dosage: 5 ML DAILY;
     Route: 048
     Dates: start: 20191017
  11. 5-FLUOROURACIL [Suspect]
     Active Substance: FLUOROURACIL
     Dosage: 2400 MG/M2,1 IN 2 WEEKS
     Route: 042
     Dates: start: 20190814, end: 20190816
  12. 5-FLUOROURACIL [Suspect]
     Active Substance: FLUOROURACIL
     Dosage: 2400 MG/M2,1 IN 2 WEEKS
     Route: 042
     Dates: start: 20190828, end: 20190830
  13. LEUCOVORIN. [Suspect]
     Active Substance: LEUCOVORIN
     Indication: NEOPLASM
     Dosage: DAYS 1 AND 15 OF EACH 28-DAY CYCLE (400 MG,1 IN 2 WEEK)
     Route: 042
     Dates: start: 20190814, end: 20191009
  14. GLIMEPIRIDE. [Concomitant]
     Active Substance: GLIMEPIRIDE
     Indication: TYPE 2 DIABETES MELLITUS
     Dosage: 10 MILLIGRAM DAILY;
     Route: 048
     Dates: start: 2017
  15. ISOSORBIDE MONONITRATE ER [Concomitant]
     Active Substance: ISOSORBIDE MONONITRATE
     Indication: CARDIOVASCULAR EVENT PROPHYLAXIS
     Dosage: 30 MILLIGRAM DAILY;
     Route: 048
     Dates: start: 2018
  16. FUROSEMIDE. [Concomitant]
     Active Substance: FUROSEMIDE
     Indication: OEDEMA
     Dosage: 20 MILLIGRAM DAILY; EVERY OTHER DAY
     Route: 048
     Dates: start: 20190919
  17. 5-FLUOROURACIL [Suspect]
     Active Substance: FLUOROURACIL
     Indication: NEOPLASM
     Route: 042
     Dates: start: 20190814, end: 20190814
  18. 5-FLUOROURACIL [Suspect]
     Active Substance: FLUOROURACIL
     Dosage: 400 MG/M2,1 IN 2 WEEKS
     Route: 042
     Dates: start: 20190828, end: 20190828
  19. 5-FLUOROURACIL [Suspect]
     Active Substance: FLUOROURACIL
     Dosage: 400 MG/M2,1 IN 2 WEEKS
     Route: 042
     Dates: start: 20191009, end: 20191009
  20. CARVEDILOL. [Concomitant]
     Active Substance: CARVEDILOL
     Indication: HYPERTENSION
     Dosage: 25 MILLIGRAM DAILY; 25 MG (12.5 MG, 2 TIMES A DAY)
     Route: 048
     Dates: start: 2018
  21. HYDROCODONE [Concomitant]
     Active Substance: HYDROCODONE
     Indication: MUSCULOSKELETAL PAIN
     Dosage: 7.5/200 MG, AS REQUIRED
     Route: 048
     Dates: start: 201905
  22. TRIPLE MIX [Concomitant]
     Indication: MUCOSAL INFLAMMATION
     Dosage: DOSAGE IS 1-2  (TEASPOON 1 IN 4 HOURS) ONGOING
     Route: 048
     Dates: start: 20190814
  23. ZOLPIDEM TARTRATE. [Concomitant]
     Active Substance: ZOLPIDEM TARTRATE
     Indication: INSOMNIA
     Dosage: 10 MILLIGRAM DAILY;
     Route: 048
     Dates: start: 20190828
  24. KLOR-CON [Concomitant]
     Active Substance: POTASSIUM CHLORIDE
     Indication: OEDEMA
     Dosage: 20 MILLIEQUIVALENTS DAILY;
     Route: 048
     Dates: start: 20190919
  25. 5-FLUOROURACIL [Suspect]
     Active Substance: FLUOROURACIL
     Dosage: 400 MG/M2,1 IN 2 WEEKS
     Route: 042
     Dates: start: 20190925, end: 20190925
  26. IRINOTECAN [Suspect]
     Active Substance: IRINOTECAN
     Dosage: DAYS 1 AND 15 OF EACH 28-DAY CYCLE (120 MG/M2,1 IN 2 WK)
     Route: 042
     Dates: start: 20190925, end: 20191009
  27. ASPIRIN. [Concomitant]
     Active Substance: ASPIRIN
     Indication: CARDIOVASCULAR EVENT PROPHYLAXIS
     Dosage: 81 MILLIGRAM DAILY;
     Route: 048
     Dates: start: 2018
  28. CHLORTHALIDONE. [Concomitant]
     Active Substance: CHLORTHALIDONE
     Indication: PROPHYLAXIS
     Dosage: 25 MILLIGRAM DAILY;
     Route: 048
     Dates: start: 2018
  29. 5-FLUOROURACIL [Suspect]
     Active Substance: FLUOROURACIL
     Dosage: 2400 MG/M2,1 IN 2 WEEKS
     Route: 042
     Dates: start: 20190925, end: 20190927
  30. ATORVASTATIN CALCIUM. [Concomitant]
     Active Substance: ATORVASTATIN CALCIUM
     Indication: HYPERCHOLESTEROLAEMIA
     Dosage: 40 MILLIGRAM DAILY;
     Route: 048
     Dates: start: 2018
  31. DEXAMETHASONE. [Concomitant]
     Active Substance: DEXAMETHASONE
     Indication: MUCOSAL INFLAMMATION
     Dosage: 10 ML DAILY;
     Route: 048
     Dates: start: 20191015
  32. HYDROCODONE-ACETAMINOPHEN [Concomitant]
     Active Substance: ACETAMINOPHEN\HYDROCODONE
     Indication: TUMOUR PAIN
     Dosage: DOSAGE: 5-325 MG
     Route: 048
     Dates: start: 20190821

REACTIONS (1)
  - Febrile neutropenia [Recovered/Resolved]

NARRATIVE: CASE EVENT DATE: 20191020
